FAERS Safety Report 6221145-X (Version None)
Quarter: 2009Q2

REPORT INFORMATION
  Report Type: 
  Country: None (occurrence: None)
  Receive Date: 20090608
  Receipt Date: 20090526
  Transmission Date: 20091009
  Serious: Yes (Other)
  Sender: FDA-Public Use
  Company Number: GB-GDP-09406025

PATIENT
  Age: 29 Year
  Sex: Female
  Weight: 66.8 kg

DRUGS (3)
  1. BENZOYL PEROXIDE (BENZOYL PEROXIDE) [Suspect]
     Indication: ACNE
     Dosage: 1 DF QD TOPICAL
     Route: 061
     Dates: start: 20090501, end: 20090503
  2. CLINDAMYCIN HCL [Suspect]
     Indication: ACNE
     Dosage: 1 DF QD TOPICAL
     Route: 061
     Dates: start: 20090501, end: 20090503
  3. CITALOPRAM [Concomitant]

REACTIONS (5)
  - APPLICATION SITE REACTION [None]
  - EYELID OEDEMA [None]
  - PERIORBITAL OEDEMA [None]
  - RASH PUSTULAR [None]
  - SWELLING FACE [None]
